FAERS Safety Report 8166935-1 (Version None)
Quarter: 2012Q1

REPORT INFORMATION
  Report Type: 
  Country: None (occurrence: None)
  Receive Date: 20120227
  Receipt Date: 20120222
  Transmission Date: 20120608
  Serious: Yes (Life-Threatening, Hospitalization)
  Sender: FDA-Public Use
  Company Number: DE-JNJFOC-20120210610

PATIENT
  Age: 51 Year
  Sex: Male

DRUGS (9)
  1. HALDOL [Suspect]
     Route: 048
     Dates: start: 20120107, end: 20120108
  2. AKINETON [Concomitant]
     Route: 048
  3. HALDOL [Suspect]
     Indication: PRODUCT USED FOR UNKNOWN INDICATION
     Route: 048
     Dates: start: 20120102, end: 20120105
  4. DIAZEPAM [Suspect]
     Route: 048
     Dates: start: 20120106, end: 20120108
  5. HALDOL [Suspect]
     Route: 048
     Dates: start: 20120106, end: 20120106
  6. DIAZEPAM [Suspect]
     Indication: PRODUCT USED FOR UNKNOWN INDICATION
     Route: 048
     Dates: start: 20111229, end: 20120103
  7. LITHIUM CARBONATE [Concomitant]
     Route: 048
     Dates: end: 20120106
  8. DIAZEPAM [Suspect]
     Route: 048
     Dates: start: 20120104, end: 20120104
  9. PANTOPRAZOLE [Concomitant]
     Route: 048

REACTIONS (3)
  - PULMONARY EMBOLISM [None]
  - DEEP VEIN THROMBOSIS [None]
  - HYPERNATRAEMIA [None]
